FAERS Safety Report 4265511-0 (Version None)
Quarter: 2004Q1

REPORT INFORMATION
  Report Type: 
  Country: None (occurrence: None)
  Receive Date: 20040107
  Receipt Date: 20040107
  Transmission Date: 20041129
  Serious: No
  Sender: FDA-Public Use
  Company Number: None

PATIENT

DRUGS (2)
  1. ZYVOX [Suspect]
     Dosage: TABLET
  2. CELEXA [Suspect]

REACTIONS (2)
  - MEDICATION ERROR [None]
  - SEROTONIN SYNDROME [None]
